FAERS Safety Report 19583946 (Version 5)
Quarter: 2021Q4

REPORT INFORMATION
  Report Type: Spontaneous
  Country: CA (occurrence: CA)
  Receive Date: 20210720
  Receipt Date: 20211129
  Transmission Date: 20220303
  Serious: Yes (Other)
  Sender: FDA-Public Use
  Company Number: CA-PFIZER INC-2016540201

PATIENT
  Age: 62 Year
  Sex: Female

DRUGS (18)
  1. IBRANCE [Suspect]
     Active Substance: PALBOCICLIB
     Dosage: 100 MG DAILY, 21 DAYS THEN 7 DAYS OFF
     Route: 048
     Dates: start: 20200821
  2. IBRANCE [Suspect]
     Active Substance: PALBOCICLIB
     Dosage: 75 MG, CYCLIC (DAILY FOR 3 WEEKS ON 1 WEEK OFF)
     Route: 048
     Dates: start: 20211023
  3. CALCIUM [Concomitant]
     Active Substance: CALCIUM
     Dosage: 500 MG, DAILY
     Dates: start: 20210630
  4. ELAVIL [Concomitant]
     Active Substance: AMITRIPTYLINE HYDROCHLORIDE
     Dosage: 50 MG, DAILY (HS)
  5. FASLODEX [Concomitant]
     Active Substance: FULVESTRANT
     Dosage: UNK
  6. FULVESTRANT [Concomitant]
     Active Substance: FULVESTRANT
     Dosage: 500 MG, Q2W
     Route: 030
  7. HYDROMORPHONE [Concomitant]
     Active Substance: HYDROMORPHONE
     Dosage: 2 MG, EVERY 4 HRS
  8. HYDROMORPHONE [Concomitant]
     Active Substance: HYDROMORPHONE
     Dosage: 6 MG, DAILY (2 CAPS QD HYDROMORPHONE 2MG: PRN WITH HYDROMORPHONE 6 MG)
     Dates: start: 20210630
  9. INNOHEP [Concomitant]
     Active Substance: TINZAPARIN SODIUM
     Dosage: 12000 UNITED STATES PHARMACOPEIA UNIT, DAILY
     Dates: start: 20210630
  10. LORAZEPAM [Concomitant]
     Active Substance: LORAZEPAM
     Dosage: 1 MG, AS NEEDED
  11. MIRTAZAPINE [Concomitant]
     Active Substance: MIRTAZAPINE
     Dosage: 30 MG, DAILY
  12. NADOLOL [Concomitant]
     Active Substance: NADOLOL
     Dosage: 40 MG, DAILY (1/2 A TAB)
     Dates: start: 20210630
  13. PROCHLORAZINE [Concomitant]
     Indication: Nausea
     Dosage: 10 MG, AS NEEDED
     Dates: start: 20210630
  14. PANTOPRAZOLE [Concomitant]
     Active Substance: PANTOPRAZOLE
     Dosage: 40 MG, DAILY
  15. TRAZODONE [Concomitant]
     Active Substance: TRAZODONE HYDROCHLORIDE
     Dosage: 50 MG, DAILY (HS)
  16. ERGOCALCIFEROL [Concomitant]
     Active Substance: ERGOCALCIFEROL
     Dosage: 1000 UNITED STATES PHARMACOPEIA UNIT, DAILY
     Dates: start: 20210630
  17. XARELTO [Concomitant]
     Active Substance: RIVAROXABAN
     Dosage: 20 MG, DAILY (AM)
  18. ZOMETA [Concomitant]
     Active Substance: ZOLEDRONIC ACID
     Dosage: EVERY 6 WEEKS
     Route: 042

REACTIONS (3)
  - Sternal fracture [Unknown]
  - Fall [Unknown]
  - Neutrophil count increased [Unknown]

NARRATIVE: CASE EVENT DATE: 20210501
